FAERS Safety Report 12952608 (Version 1)
Quarter: 2016Q4

REPORT INFORMATION
  Report Type: Spontaneous
  Country: US (occurrence: US)
  Receive Date: 20161117
  Receipt Date: 20161117
  Transmission Date: 20170207
  Serious: No
  Sender: FDA-Public Use
  Company Number: US-SA-2016SA187838

PATIENT
  Age: 71 Year
  Sex: Female

DRUGS (5)
  1. SOLOSTAR [Concomitant]
     Active Substance: DEVICE
  2. TRADJENTA [Concomitant]
     Active Substance: LINAGLIPTIN
  3. TOUJEO [Suspect]
     Active Substance: INSULIN GLARGINE
     Indication: TYPE 2 DIABETES MELLITUS
     Dosage: DOSE : 30 U QAM AND 35 U QPM
     Route: 065
     Dates: start: 2015
  4. LEVEMIR [Concomitant]
     Active Substance: INSULIN DETEMIR
  5. METFORMIN [Concomitant]
     Active Substance: METFORMIN HYDROCHLORIDE

REACTIONS (3)
  - Weight increased [Unknown]
  - Hunger [Unknown]
  - Product use issue [Unknown]

NARRATIVE: CASE EVENT DATE: 2015
